FAERS Safety Report 5845066-7 (Version None)
Quarter: 2008Q3

REPORT INFORMATION
  Report Type: 
  Country: None (occurrence: None)
  Receive Date: 20080813
  Receipt Date: 20080813
  Transmission Date: 20090109
  Serious: Yes (Hospitalization)
  Sender: FDA-Public Use
  Company Number: None

PATIENT
  Sex: Male
  Weight: 99.5 kg

DRUGS (2)
  1. DASATINIB [Suspect]
     Indication: SARCOMA
     Dosage: 70 MG BID PO
     Route: 048
     Dates: start: 20080708, end: 20080723
  2. DASATINIB [Suspect]
     Indication: SARCOMA
     Dosage: 50 MG BID PO
     Route: 048
     Dates: start: 20080723, end: 20080727

REACTIONS (9)
  - ABDOMINAL PAIN [None]
  - CONSTIPATION [None]
  - DEHYDRATION [None]
  - DISEASE PROGRESSION [None]
  - METASTASES TO CENTRAL NERVOUS SYSTEM [None]
  - METASTASIS [None]
  - PAIN [None]
  - PERICARDIAL EFFUSION [None]
  - PLEURAL EFFUSION [None]
